FAERS Safety Report 25899213 (Version 3)
Quarter: 2025Q4

REPORT INFORMATION
  Report Type: Spontaneous
  Country: US (occurrence: US)
  Receive Date: 20251009
  Receipt Date: 20251125
  Transmission Date: 20260117
  Serious: Yes (Death, Hospitalization, Other)
  Sender: CORCEPT
  Company Number: US-CORCEPT THERAPEUTICS INC.-US-2025CRT004361

PATIENT

DRUGS (32)
  1. KORLYM [Suspect]
     Active Substance: MIFEPRISTONE
     Indication: Cushing^s syndrome
     Dosage: 300 MG, QD
     Route: 065
     Dates: start: 20250424, end: 2025
  2. KORLYM [Suspect]
     Active Substance: MIFEPRISTONE
     Dosage: 600 MG, QD
     Route: 065
     Dates: start: 2025, end: 202508
  3. KORLYM [Suspect]
     Active Substance: MIFEPRISTONE
     Dosage: 300 MG, QD
     Route: 065
     Dates: start: 202508
  4. PACERONE [Concomitant]
     Active Substance: AMIODARONE HYDROCHLORIDE
     Indication: Product used for unknown indication
     Dosage: 400 MG, QD
     Route: 048
     Dates: start: 20250109
  5. ELIQUIS [Concomitant]
     Active Substance: APIXABAN
     Indication: Atrial fibrillation
     Dosage: 5 MG, BID
     Route: 048
     Dates: start: 20250901
  6. ASPIRIN [Concomitant]
     Active Substance: ASPIRIN
     Indication: Product used for unknown indication
  7. LIPITOR [Concomitant]
     Active Substance: ATORVASTATIN CALCIUM
     Indication: Product used for unknown indication
     Dosage: 80 MG
     Route: 048
     Dates: start: 20230602
  8. PULMICORT TURBUHALER [Concomitant]
     Active Substance: BUDESONIDE
     Indication: Product used for unknown indication
     Dosage: 0.5 MG/2 ML
     Dates: start: 20250731
  9. COREG [Concomitant]
     Active Substance: CARVEDILOL
     Indication: Product used for unknown indication
     Dosage: 12.5 MG, BID
     Route: 048
     Dates: start: 20250717
  10. DICYCLOMINE [Concomitant]
     Active Substance: DICYCLOMINE HYDROCHLORIDE
     Indication: Product used for unknown indication
  11. HYDROCHLOROTHIAZIDE [Concomitant]
     Active Substance: HYDROCHLOROTHIAZIDE
     Indication: Product used for unknown indication
  12. INSULIN GLARGINE [Concomitant]
     Active Substance: INSULIN GLARGINE
     Indication: Product used for unknown indication
  13. LISINOPRIL [Concomitant]
     Active Substance: LISINOPRIL
     Indication: Product used for unknown indication
     Dosage: 40 MG, QD
  14. GLUCOPHAGE XR [Concomitant]
     Active Substance: METFORMIN HYDROCHLORIDE
     Indication: Product used for unknown indication
     Dosage: 500 MG, QD
     Route: 048
  15. REGLAN [Concomitant]
     Active Substance: METOCLOPRAMIDE HYDROCHLORIDE
     Indication: Product used for unknown indication
  16. PRILOSEC [Concomitant]
     Active Substance: OMEPRAZOLE MAGNESIUM
     Indication: Product used for unknown indication
     Dosage: 40 MG
     Route: 048
     Dates: start: 20231122
  17. SPIRONOLACTONE [Concomitant]
     Active Substance: SPIRONOLACTONE
     Indication: Product used for unknown indication
  18. ACETAMINOPHEN [Concomitant]
     Active Substance: ACETAMINOPHEN
     Indication: Product used for unknown indication
  19. SIMETHICONE (DIMETHICONE) [Concomitant]
     Active Substance: DIMETHICONE
     Indication: Product used for unknown indication
  20. DUONEB [Concomitant]
     Active Substance: ALBUTEROL SULFATE\IPRATROPIUM BROMIDE
     Indication: Product used for unknown indication
     Dosage: 0.5 MG-3 MG
     Dates: start: 20240426
  21. NITROSTAT [Concomitant]
     Active Substance: NITROGLYCERIN
     Indication: Chest pain
     Dosage: 0.4
     Route: 060
     Dates: start: 20230602
  22. ONDANSETRON [Concomitant]
     Active Substance: ONDANSETRON
     Indication: Product used for unknown indication
  23. PROMETHAZINE [Concomitant]
     Active Substance: PROMETHAZINE HYDROCHLORIDE
     Indication: Product used for unknown indication
  24. TIZANIDINE [Concomitant]
     Active Substance: TIZANIDINE
     Indication: Product used for unknown indication
  25. CIALIS [Concomitant]
     Active Substance: TADALAFIL
     Indication: Erectile dysfunction
     Dosage: 20 MG, QD
     Route: 048
     Dates: start: 20250605
  26. ALUMINUM HYDROXIDE [Concomitant]
     Active Substance: ALUMINUM HYDROXIDE
     Indication: Product used for unknown indication
  27. MAGNESIUM HYDROXIDE [Concomitant]
     Active Substance: MAGNESIUM HYDROXIDE
     Indication: Product used for unknown indication
  28. AMMONIUM LACTATE [Concomitant]
     Active Substance: AMMONIUM LACTATE
     Indication: Dry skin
     Dosage: 12 %
     Dates: start: 20250227
  29. TYLENOL [Concomitant]
     Active Substance: ACETAMINOPHEN
     Indication: Pain
     Dosage: 325 MG, 6 HOURS
     Route: 048
  30. NEURONTIN [Concomitant]
     Active Substance: GABAPENTIN
     Indication: Product used for unknown indication
     Dosage: 300 MG, QD
     Route: 048
     Dates: start: 20250227
  31. APRESOLINE HYDROCHLORIDE [Concomitant]
     Active Substance: HYDRALAZINE HYDROCHLORIDE
     Indication: Product used for unknown indication
     Dosage: 100 MG
     Route: 048
     Dates: start: 20250923
  32. LAMISIL [Concomitant]
     Active Substance: TERBINAFINE HYDROCHLORIDE
     Indication: Product used for unknown indication
     Dosage: 250 MG, QD
     Dates: start: 20250131

REACTIONS (2)
  - Vertebrobasilar stroke [Fatal]
  - Acute kidney injury [Unknown]

NARRATIVE: CASE EVENT DATE: 20250925
